FAERS Safety Report 25516113 (Version 1)
Quarter: 2025Q3

REPORT INFORMATION
  Report Type: Spontaneous
  Country: US (occurrence: US)
  Receive Date: 20250704
  Receipt Date: 20250704
  Transmission Date: 20251020
  Serious: Yes (Death, Hospitalization, Other)
  Sender: LUPIN
  Company Number: US-LUPIN PHARMACEUTICALS INC.-2025-05613

PATIENT
  Age: 64 Year
  Sex: Female

DRUGS (5)
  1. AMLODIPINE [Interacting]
     Active Substance: AMLODIPINE BESYLATE
     Indication: Product used for unknown indication
     Route: 065
  2. TORSEMIDE [Interacting]
     Active Substance: TORSEMIDE
     Indication: Product used for unknown indication
     Route: 065
  3. APIXABAN [Interacting]
     Active Substance: APIXABAN
     Indication: Product used for unknown indication
     Route: 065
  4. SERTRALINE [Concomitant]
     Active Substance: SERTRALINE HYDROCHLORIDE
     Indication: Depression
  5. INSULIN NOS [Concomitant]
     Active Substance: INSULIN NOS
     Indication: Intentional overdose
     Route: 065

REACTIONS (5)
  - Acute kidney injury [Fatal]
  - Drug interaction [Fatal]
  - Haemodynamic instability [Fatal]
  - Intentional overdose [Fatal]
  - Toxicity to various agents [Fatal]
